FAERS Safety Report 6653665-8 (Version None)
Quarter: 2010Q1

REPORT INFORMATION
  Report Type: 
  Country: None (occurrence: None)
  Receive Date: 20100326
  Receipt Date: 20100322
  Transmission Date: 20100710
  Serious: Yes (Death)
  Sender: FDA-Public Use
  Company Number: US-GILEAD-2010-0028055

PATIENT
  Sex: Male

DRUGS (13)
  1. LETAIRIS [Suspect]
     Indication: PULMONARY ARTERIAL HYPERTENSION
     Route: 048
     Dates: start: 20080423
  2. COUMADIN [Concomitant]
  3. FUROSEMIDE [Concomitant]
  4. METOPROLOL TARTRATE [Concomitant]
  5. NIFEDIPINE [Concomitant]
  6. ALBUTEROL [Concomitant]
  7. ADVAIR DISKUS 100/50 [Concomitant]
  8. FOSAMAX [Concomitant]
  9. PREDNISONE [Concomitant]
  10. NEXIUM [Concomitant]
  11. SPIRIVA [Concomitant]
  12. KLOR-CON [Concomitant]
  13. VITAMIN D [Concomitant]

REACTIONS (1)
  - DEATH [None]
